FAERS Safety Report 9522400 (Version 1)
Quarter: 2013Q1

REPORT INFORMATION
  Report Type: Spontaneous
  Country: US (occurrence: None)
  Receive Date: 20130305
  Receipt Date: 20130305
  Transmission Date: 20140127
  Serious: Yes (Hospitalization)
  Sender: FDA-Public Use
  Company Number: 163-21880-12031710

PATIENT
  Age: 58 Year
  Sex: Male
  Weight: 63.5 kg

DRUGS (15)
  1. REVLIMID (LENALIDOMIDE) (25 MILLIGRAM, CAPSULES) [Suspect]
     Indication: PLASMA CELL MYELOMA
     Dosage: 25 MG, DAILY X 21 DAYS, PO
     Route: 048
     Dates: start: 20120121
  2. AMLODIPINE (AMLODIPINE) [Concomitant]
  3. CEFUROXINE (CEFUROXIME) [Concomitant]
  4. CLONIDINE (CLONIDINE) [Concomitant]
  5. CYCLOBENZAPRINE (CYCLOBENZAPRINE) [Concomitant]
  6. IRON (IRON) [Concomitant]
  7. LORAZEPAM (LORAZEPAM) [Concomitant]
  8. METOPROLOL (METOPROLOL) [Concomitant]
  9. MORPHINE [Concomitant]
  10. MULTIVITAMIN (MULTIVITAMINS) [Concomitant]
  11. POTASSIUM (POTASSIUM) [Concomitant]
  12. PROCRIT [Concomitant]
  13. TRAZODONE (TRAZODONE) [Concomitant]
  14. VITAMIN D3 (COLECALCIFEROL) [Concomitant]
  15. WARFARIN (WARFARIN) [Concomitant]

REACTIONS (2)
  - Full blood count decreased [None]
  - Fatigue [None]
